FAERS Safety Report 8772832 (Version 1)
Quarter: 2012Q4

REPORT INFORMATION
  Report Type: 
  Country: JP (occurrence: JP)
  Receive Date: 20120907
  Receipt Date: 20121015
  Transmission Date: 20130627
  Serious: Yes (Hospitalization)
  Sender: FDA-Public Use
  Company Number: JP-PFIZER INC-2012215053

PATIENT
  Age: 60 Year
  Sex: Male
  Weight: 69 kg

DRUGS (22)
  1. CAMPTO [Suspect]
     Indication: RECTAL CANCER
     Dosage: 200 mg, once a day (114.2 mg/m2)
     Route: 041
     Dates: start: 20120808, end: 20120808
  2. FLUOROURACIL [Suspect]
     Indication: RECTAL CANCER
     Dosage: 500 mg, once a day (285.4 mg/m2)
     Route: 040
     Dates: start: 20120808, end: 20120808
  3. FLUOROURACIL [Suspect]
     Dosage: 3300 mg, once in 2 days (1883.6 mg/m2/d1-2)
     Route: 041
     Dates: start: 20120808, end: 20120808
  4. AVASTIN [Suspect]
     Indication: RECTAL CANCER
     Dosage: 280 mg, once a day
     Route: 041
     Dates: start: 20120808, end: 20120808
  5. ISOVORIN (LEVOFOLINATE CALCIUM) [Concomitant]
     Dosage: 280 mg, once a day (159.8 mg/m2)
     Dates: start: 20120808, end: 20120808
  6. BAYASPIRIN [Concomitant]
     Dosage: UNK
     Dates: start: 20100623, end: 20120826
  7. PLAVIX [Concomitant]
     Dosage: UNK
     Dates: start: 20100623, end: 20120826
  8. KYTRIL [Concomitant]
     Dosage: UNK
     Dates: start: 20120808, end: 20120808
  9. DECADRON [Concomitant]
     Dosage: UNK
     Dates: start: 20120808, end: 20120808
  10. ARTIST [Concomitant]
     Dosage: UNK
     Dates: start: 20100624
  11. NIKORANMART [Concomitant]
     Dosage: UNK
     Dates: start: 20100624
  12. OLMETEC [Concomitant]
     Dosage: UNK
     Dates: start: 20100625
  13. STANZOME [Concomitant]
     Dosage: UNK
     Dates: start: 20100625
  14. FEROTYM [Concomitant]
     Dosage: UNK
     Dates: start: 20100625
  15. APATYA [Concomitant]
     Dosage: UNK
     Dates: start: 20100625
  16. CORINAEL CR [Concomitant]
     Dosage: UNK
     Dates: start: 20100628
  17. JANUVIA [Concomitant]
     Dosage: UNK
     Dates: start: 20110406
  18. ETHYL ICOSAPENTATE [Concomitant]
     Dosage: UNK
     Dates: start: 20110708
  19. FEBURIC [Concomitant]
     Dosage: UNK
     Dates: start: 20111005
  20. BUSCOPAN [Concomitant]
     Dosage: UNK
     Dates: start: 20120808, end: 20120808
  21. LOPEMIN [Concomitant]
     Dosage: UNK
     Dates: start: 20120817, end: 20120819
  22. OMEPRAL [Concomitant]
     Dosage: UNK
     Dates: start: 20120827, end: 20120829

REACTIONS (3)
  - Large intestinal ulcer [Recovering/Resolving]
  - Diarrhoea [Recovered/Resolved]
  - Abdominal pain [Recovered/Resolved]
